FAERS Safety Report 21058535 (Version 5)
Quarter: 2023Q1

REPORT INFORMATION
  Report Type: Spontaneous
  Country: US (occurrence: US)
  Receive Date: 20220708
  Receipt Date: 20230127
  Transmission Date: 20230417
  Serious: Yes (Hospitalization, Other)
  Sender: FDA-Public Use
  Company Number: US-GSKCCFUS-Case-01427738_AE-82025

PATIENT

DRUGS (1)
  1. BENLYSTA [Suspect]
     Active Substance: BELIMUMAB
     Indication: Systemic lupus erythematosus
     Dosage: UNK
     Route: 042
     Dates: start: 20220524

REACTIONS (36)
  - Swollen tongue [Unknown]
  - Erythema [Unknown]
  - Swelling face [Unknown]
  - Brain neoplasm [Unknown]
  - Aphonia [Unknown]
  - Anaphylactic reaction [Unknown]
  - Choking [Unknown]
  - Seizure [Unknown]
  - Immunoglobulins abnormal [Unknown]
  - Cardiolipin antibody [Unknown]
  - Blood pressure increased [Unknown]
  - Balance disorder [Unknown]
  - Speech disorder [Unknown]
  - Urinary tract infection [Not Recovered/Not Resolved]
  - Pain [Not Recovered/Not Resolved]
  - Chest pain [Not Recovered/Not Resolved]
  - Neck pain [Unknown]
  - Feeling abnormal [Unknown]
  - Dysuria [Unknown]
  - Cough [Not Recovered/Not Resolved]
  - Dehydration [Unknown]
  - Chills [Unknown]
  - Paraesthesia [Not Recovered/Not Resolved]
  - Immune system disorder [Unknown]
  - Burning sensation [Unknown]
  - Pallor [Unknown]
  - Asthenia [Unknown]
  - Arthralgia [Unknown]
  - Vomiting [Unknown]
  - Palpitations [Unknown]
  - Dyspnoea [Unknown]
  - Night sweats [Unknown]
  - Productive cough [Not Recovered/Not Resolved]
  - Peripheral swelling [Unknown]
  - Swelling [Unknown]
  - Incorrect dose administered [Unknown]

NARRATIVE: CASE EVENT DATE: 20220524
